FAERS Safety Report 14197060 (Version 1)
Quarter: 2017Q4

REPORT INFORMATION
  Report Type: Spontaneous
  Country: KR (occurrence: KR)
  Receive Date: 20171116
  Receipt Date: 20171116
  Transmission Date: 20180321
  Serious: Yes (Other)
  Sender: FDA-Public Use
  Company Number: KR-009507513-1711KOR005660

PATIENT
  Age: 85 Year
  Sex: Female

DRUGS (3)
  1. JANUMET [Suspect]
     Active Substance: METFORMIN HYDROCHLORIDE\SITAGLIPTIN PHOSPHATE
     Dosage: JANUMET 50/850 TWICE DAILY ONCE IN THE MORNING
     Route: 048
  2. INSULIN [Concomitant]
     Active Substance: INSULIN NOS
  3. JANUMET [Suspect]
     Active Substance: METFORMIN HYDROCHLORIDE\SITAGLIPTIN PHOSPHATE
     Dosage: JANUMET 50/850  TWICE DAILY ONCE IN THE EVENING
     Route: 048

REACTIONS (1)
  - Diabetes mellitus inadequate control [Unknown]
